FAERS Safety Report 5288980-6 (Version None)
Quarter: 2007Q2

REPORT INFORMATION
  Report Type: 
  Country: None (occurrence: None)
  Receive Date: 20070405
  Receipt Date: 20070312
  Transmission Date: 20071010
  Serious: Yes (Other)
  Sender: FDA-Public Use
  Company Number: US-PFIZER INC-2007019330

PATIENT
  Sex: Female
  Weight: 71.2 kg

DRUGS (1)
  1. BEXTRA [Suspect]
     Indication: PAIN
     Dates: start: 20020501, end: 20020528

REACTIONS (1)
  - STEVENS-JOHNSON SYNDROME [None]
